FAERS Safety Report 6122953-6 (Version None)
Quarter: 2009Q1

REPORT INFORMATION
  Report Type: 
  Country: None (occurrence: None)
  Receive Date: 20090318
  Receipt Date: 20080328
  Transmission Date: 20090719
  Serious: No
  Sender: FDA-Public Use
  Company Number: US-AMGEN-KDL271113

PATIENT
  Sex: Female
  Weight: 44.5 kg

DRUGS (14)
  1. NEULASTA [Suspect]
     Indication: CHEMOTHERAPY
     Route: 058
     Dates: start: 20080116, end: 20080326
  2. DOXORUBICIN HCL [Concomitant]
     Dates: start: 20080115
  3. CYCLOPHOSPHAMIDE [Concomitant]
     Dates: start: 20080325
  4. TAXOTERE [Concomitant]
     Dates: start: 20080311
  5. ALOXI [Concomitant]
     Dates: start: 20060325, end: 20060325
  6. DECADRON [Concomitant]
     Dates: start: 20060324, end: 20060325
  7. ARANESP [Concomitant]
     Dates: start: 20080226, end: 20080317
  8. COMPAZINE [Concomitant]
     Dates: start: 20031217
  9. ATIVAN [Concomitant]
     Dates: start: 20031217
  10. PRILOSEC [Concomitant]
  11. ZOFRAN [Concomitant]
     Dates: start: 20060115
  12. POTASSIUM CHLORIDE [Concomitant]
     Dates: start: 20080325
  13. KEFLEX [Concomitant]
  14. CYTOXAN [Concomitant]
     Dates: start: 20080115

REACTIONS (5)
  - BLOOD LACTATE DEHYDROGENASE INCREASED [None]
  - COUGH [None]
  - SKIN EXFOLIATION [None]
  - SKIN HYPERPIGMENTATION [None]
  - WHITE BLOOD CELL COUNT INCREASED [None]
